FAERS Safety Report 6582605-5 (Version None)
Quarter: 2010Q1

REPORT INFORMATION
  Report Type: 
  Country: None (occurrence: None)
  Receive Date: 20100216
  Receipt Date: 20100210
  Transmission Date: 20100710
  Serious: Yes (Other)
  Sender: FDA-Public Use
  Company Number: JP-ASTRAZENECA-2010SE06264

PATIENT
  Age: 53 Year
  Sex: Female
  Weight: 58 kg

DRUGS (16)
  1. DIPRIVAN [Suspect]
     Indication: INDUCTION AND MAINTENANCE OF ANAESTHESIA
     Route: 042
  2. DIPRIVAN [Suspect]
     Indication: SEDATION
     Route: 042
  3. DIPRIVAN [Suspect]
     Dosage: 3MG/KG/H AT THE FIRST SURGERY
     Route: 042
  4. DIPRIVAN [Suspect]
     Dosage: 3MG/KG/H AT THE FIRST SURGERY
     Route: 042
  5. DIPRIVAN [Suspect]
     Dosage: 3-4MG/KG/H AT THE ICU
     Route: 042
  6. DIPRIVAN [Suspect]
     Dosage: 3-4MG/KG/H AT THE ICU
     Route: 042
  7. DIPRIVAN [Suspect]
     Dosage: 5 MCG/ML AT THE SECOND SURGERY
     Route: 042
  8. DIPRIVAN [Suspect]
     Dosage: 5 MCG/ML AT THE SECOND SURGERY
     Route: 042
  9. DIPRIVAN [Suspect]
     Dosage: 3 MG/KG/H AFTER THE SECOND SURGERY IN THE ICU
     Route: 042
  10. DIPRIVAN [Suspect]
     Dosage: 3 MG/KG/H AFTER THE SECOND SURGERY IN THE ICU
     Route: 042
  11. SEVOFLURANE [Suspect]
     Indication: INDUCTION OF ANAESTHESIA
     Dosage: 1-3% AT THE FIRST SURGERY
     Route: 055
  12. LIDOCAINE [Concomitant]
     Indication: INDUCTION OF ANAESTHESIA
     Route: 008
  13. VECURONIUM BROMIDE [Concomitant]
     Indication: INDUCTION OF ANAESTHESIA
     Route: 042
  14. FENTANYL-100 [Concomitant]
     Indication: INDUCTION OF ANAESTHESIA
     Route: 041
  15. OXYGEN [Concomitant]
     Indication: INDUCTION OF ANAESTHESIA
     Dosage: DOSE UNKNOWN
     Route: 055
  16. NITROUS OXIDE [Concomitant]
     Indication: INDUCTION OF ANAESTHESIA
     Dosage: DOSE UNKNOWN
     Route: 055

REACTIONS (1)
  - HYPERTHERMIA MALIGNANT [None]
